FAERS Safety Report 14669189 (Version 1)
Quarter: 2018Q1

REPORT INFORMATION
  Report Type: Other
  Country: US (occurrence: US)
  Receive Date: 20180322
  Receipt Date: 20180322
  Transmission Date: 20180509
  Serious: Yes (Death)
  Sender: FDA-Public Use
  Company Number: US-INTERCEPT-PMOCA2018000392

PATIENT

DRUGS (3)
  1. OCALIVA [Suspect]
     Active Substance: OBETICHOLIC ACID
     Indication: PRIMARY BILIARY CHOLANGITIS
     Dosage: 5 MG, QD
     Route: 048
     Dates: start: 20170622
  2. URSO [Concomitant]
     Active Substance: URSODIOL
  3. OCALIVA [Suspect]
     Active Substance: OBETICHOLIC ACID
     Dosage: 5 MG, QOD
     Dates: end: 201801

REACTIONS (6)
  - Sepsis [Fatal]
  - Skin ulcer [Unknown]
  - Lymphoedema [Unknown]
  - Diabetes mellitus inadequate control [Unknown]
  - Blood bilirubin increased [Unknown]
  - Pruritus [Unknown]

NARRATIVE: CASE EVENT DATE: 2018
